FAERS Safety Report 5468613-6 (Version None)
Quarter: 2007Q3

REPORT INFORMATION
  Report Type: 
  Country: None (occurrence: None)
  Receive Date: 20070820
  Receipt Date: 20070430
  Transmission Date: 20080115
  Serious: No
  Sender: FDA-Public Use
  Company Number: WAES 0704USA03057

PATIENT
  Age: 78 Year
  Sex: Male
  Weight: 70.3075 kg

DRUGS (7)
  1. JANUVIA [Suspect]
     Indication: BLOOD GLUCOSE INCREASED
     Dosage: 50 MG DAILY PO 25 MG
     Route: 048
     Dates: end: 20070311
  2. JANUVIA [Suspect]
     Indication: BLOOD GLUCOSE INCREASED
     Dosage: 50 MG DAILY PO 25 MG
     Route: 048
     Dates: start: 20070312
  3. COZAAR [Concomitant]
  4. CRESTOR [Concomitant]
  5. HUMALOG [Concomitant]
  6. LANTUS [Concomitant]
  7. ZETIA [Concomitant]

REACTIONS (2)
  - DRUG INEFFECTIVE [None]
  - NASOPHARYNGITIS [None]
